FAERS Safety Report 13754413 (Version 1)
Quarter: 2017Q3

REPORT INFORMATION
  Report Type: Spontaneous
  Country: US (occurrence: US)
  Receive Date: 20170714
  Receipt Date: 20170714
  Transmission Date: 20171127
  Serious: Yes (Other)
  Sender: FDA-Public Use
  Company Number: None

PATIENT
  Age: 80 Year
  Sex: Female
  Weight: 81.72 kg

DRUGS (9)
  1. CALCIUM [Concomitant]
     Active Substance: CALCIUM
  2. LEVOTHYROXINE. [Concomitant]
     Active Substance: LEVOTHYROXINE
  3. CHROMEIUM [Concomitant]
  4. FLONASE [Suspect]
     Active Substance: FLUTICASONE PROPIONATE
     Indication: NASAL CONGESTION
     Dosage: 2 SPRAYS EACH NOSETRIL DAILY THROUGH NOSE?
     Route: 045
     Dates: start: 20170603, end: 20170606
  5. ZOLOFT [Concomitant]
     Active Substance: SERTRALINE HYDROCHLORIDE
  6. COENZYME Q10 [Concomitant]
     Active Substance: UBIDECARENONE
  7. CRESTOR [Concomitant]
     Active Substance: ROSUVASTATIN CALCIUM
  8. VIT. D3 [Concomitant]
  9. OCUVITE [Concomitant]
     Active Substance: VITAMINS

REACTIONS (4)
  - Ageusia [None]
  - Product odour abnormal [None]
  - Anosmia [None]
  - Nausea [None]

NARRATIVE: CASE EVENT DATE: 20170603
